FAERS Safety Report 14818024 (Version 3)
Quarter: 2018Q2

REPORT INFORMATION
  Report Type: Spontaneous
  Country: NL (occurrence: NL)
  Receive Date: 20180427
  Receipt Date: 20180524
  Transmission Date: 20180711
  Serious: Yes (Hospitalization)
  Sender: FDA-Public Use
  Company Number: NL-AUROBINDO-AUR-APL-2018-022469

PATIENT
  Age: 75 Year
  Sex: Female
  Weight: 83.5 kg

DRUGS (12)
  1. XANAX [Concomitant]
     Active Substance: ALPRAZOLAM
     Indication: SLEEP DISORDER
     Dosage: ()
  2. ALPRAZOLAM. [Concomitant]
     Active Substance: ALPRAZOLAM
     Indication: SLEEP DISORDER
     Dosage: ()
  3. GENTAMICINE                        /00047101/ [Concomitant]
     Active Substance: GENTAMICIN
     Indication: PRODUCT USED FOR UNKNOWN INDICATION
     Dosage: ()
  4. NOZINAN                            /00038601/ [Concomitant]
     Active Substance: LEVOMEPROMAZINE
     Indication: PRODUCT USED FOR UNKNOWN INDICATION
     Dosage: ()
     Route: 048
     Dates: start: 2000
  5. ALPRAZOLAM. [Concomitant]
     Active Substance: ALPRAZOLAM
     Indication: FEELING OF RELAXATION
     Dosage: ()
     Route: 048
     Dates: start: 2000
  6. HUMIRA [Concomitant]
     Active Substance: ADALIMUMAB
     Indication: PRODUCT USED FOR UNKNOWN INDICATION
     Dosage: (1)
  7. OXYCODONE [Suspect]
     Active Substance: OXYCODONE
     Indication: DIZZINESS
     Dosage: 10 MILLIGRAM
     Route: 048
     Dates: start: 201801
  8. BETAHISTINE [Suspect]
     Active Substance: BETAHISTINE
     Indication: DIZZINESS
     Dosage: UNK
     Route: 048
     Dates: start: 201711
  9. DICLOFENAC [Suspect]
     Active Substance: DICLOFENAC
     Indication: PRODUCT USED FOR UNKNOWN INDICATION
     Dosage: ()
     Route: 065
  10. MACROGOL RATIOPHARM BALANCE [Suspect]
     Active Substance: POLYETHYLENE GLYCOL 3350\POTASSIUM CHLORIDE\SODIUM BICARBONATE\SODIUM CHLORIDE
     Indication: PRODUCT USED FOR UNKNOWN INDICATION
     Dosage: UNK
     Route: 065
  11. XANAX [Concomitant]
     Active Substance: ALPRAZOLAM
     Indication: FEELING OF RELAXATION
     Dosage: ()
  12. REMERON [Concomitant]
     Active Substance: MIRTAZAPINE
     Indication: ABDOMINAL DISCOMFORT
     Dosage: ()
     Route: 048
     Dates: start: 1995

REACTIONS (14)
  - Balance disorder [Unknown]
  - Product substitution issue [Unknown]
  - Arrhythmia [Unknown]
  - Hypertension [Unknown]
  - Urinary retention [Recovered/Resolved]
  - Ill-defined disorder [Unknown]
  - Head discomfort [Unknown]
  - Multiple chemical sensitivity [Unknown]
  - Tinnitus [Unknown]
  - Nonspecific reaction [Unknown]
  - Stress [Unknown]
  - Nervousness [Unknown]
  - Hypersensitivity [Unknown]
  - Delusion [Recovered/Resolved]

NARRATIVE: CASE EVENT DATE: 201801
